FAERS Safety Report 9626469 (Version 2)
Quarter: 2013Q4

REPORT INFORMATION
  Report Type: Spontaneous
  Country: JP (occurrence: JP)
  Receive Date: 20131016
  Receipt Date: 20131016
  Transmission Date: 20140711
  Serious: Yes (Hospitalization)
  Sender: FDA-Public Use
  Company Number: JP-TAKEDA-0238756

PATIENT
  Sex: 0

DRUGS (6)
  1. TACHOSIL [Suspect]
     Indication: PROPHYLAXIS
     Dosage: 2 SHEETS OF REGULAR SIZE
     Dates: start: 20130315
  2. LOXONIN [Concomitant]
     Indication: HEPATIC CANCER METASTATIC
     Dosage: 1 DF, TID
     Route: 048
     Dates: start: 20130318, end: 20130419
  3. REBAMIPIDE [Concomitant]
     Indication: HEPATIC CANCER METASTATIC
     Dosage: 1 DF, TID
     Route: 048
     Dates: start: 20130318, end: 20130419
  4. CALONAL [Concomitant]
     Indication: HEPATIC CANCER METASTATIC
     Dosage: 2 DF, TID
     Route: 048
     Dates: start: 20130320, end: 20130426
  5. MAGLAX [Concomitant]
     Indication: HEPATIC CANCER METASTATIC
     Dosage: 1 DF, TID
     Route: 048
     Dates: start: 20130326
  6. INTEGRAN [Concomitant]
     Indication: HAEMOSTASIS
     Dosage: UNK
     Dates: start: 20130315, end: 20130315

REACTIONS (1)
  - Biliary fistula [Recovering/Resolving]
